FAERS Safety Report 8110988-3 (Version None)
Quarter: 2012Q1

REPORT INFORMATION
  Report Type: 
  Country: None (occurrence: None)
  Receive Date: 20120203
  Receipt Date: 20110124
  Transmission Date: 20120608
  Serious: Yes (Other)
  Sender: FDA-Public Use
  Company Number: US-GLAXOSMITHKLINE-A0910347A

PATIENT
  Age: 51 Year

DRUGS (3)
  1. KLONOPIN [Concomitant]
     Indication: EPILEPSY
  2. LAMICTAL [Suspect]
     Indication: EPILEPSY
  3. GENERIC MEDICATION [Suspect]
     Indication: EPILEPSY

REACTIONS (2)
  - CONVULSION [None]
  - OVERDOSE [None]
